FAERS Safety Report 9064016 (Version 1)
Quarter: 2013Q1

REPORT INFORMATION
  Report Type: Report from Study
  Country: US (occurrence: US)
  Receive Date: 20130213
  Receipt Date: 20130213
  Transmission Date: 20140127
  Serious: Yes (Life-Threatening)
  Sender: FDA-Public Use
  Company Number: US-ROCHE-1188152

PATIENT
  Age: 46 None
  Sex: Female
  Weight: 87 kg

DRUGS (4)
  1. PEGASYS [Suspect]
     Indication: HEPATITIS C
     Route: 058
     Dates: start: 20120910, end: 20130128
  2. COPEGUS [Suspect]
     Indication: HEPATITIS C
     Route: 048
     Dates: start: 20120910, end: 20130128
  3. CELEXA [Concomitant]
     Indication: DEPRESSION
     Route: 048
  4. TRAZODONE [Concomitant]
     Indication: INSOMNIA
     Route: 048

REACTIONS (2)
  - Crying [Recovering/Resolving]
  - Hallucination [Recovering/Resolving]
